FAERS Safety Report 24633857 (Version 2)
Quarter: 2024Q4

REPORT INFORMATION
  Report Type: Spontaneous
  Country: ES (occurrence: ES)
  Receive Date: 20241118
  Receipt Date: 20241121
  Transmission Date: 20250115
  Serious: Yes (Other)
  Sender: SUNOVION
  Company Number: ES-BIAL-BIAL-17722

PATIENT

DRUGS (10)
  1. ESLICARBAZEPINE ACETATE [Suspect]
     Active Substance: ESLICARBAZEPINE ACETATE
     Indication: Antisocial personality disorder
     Dosage: 1 DOSAGE FORM, DAILY
     Route: 065
     Dates: start: 20210719
  2. RIVOTRIL [Concomitant]
     Active Substance: CLONAZEPAM
     Indication: Antisocial personality disorder
     Dosage: 2 MG
     Route: 065
     Dates: start: 2019
  3. LYRICA [Concomitant]
     Active Substance: PREGABALIN
     Indication: Antisocial personality disorder
     Dosage: 150 MG
     Route: 065
     Dates: start: 2018
  4. DEPRAX [Concomitant]
     Indication: Product used for unknown indication
     Dosage: 100 MG
     Route: 065
     Dates: start: 2018
  5. OMEPRAZOLE [Concomitant]
     Active Substance: OMEPRAZOLE
     Indication: Dyspepsia
     Dosage: 20 MG
     Route: 065
     Dates: start: 2022
  6. ESLICARBAZEPINE ACETATE [Suspect]
     Active Substance: ESLICARBAZEPINE ACETATE
     Indication: Antisocial personality disorder
     Dosage: 1 DOSAGE FORM, DAILY
     Route: 065
     Dates: start: 20210719
  7. RIVOTRIL [Concomitant]
     Active Substance: CLONAZEPAM
     Indication: Antisocial personality disorder
     Dosage: UNK UNK, UNKNOWN
     Route: 065
     Dates: start: 2019
  8. LYRICA [Concomitant]
     Active Substance: PREGABALIN
     Indication: Antisocial personality disorder
     Dosage: UNK UNK, UNKNOWN
     Route: 065
     Dates: start: 2018
  9. DEPRAX [Concomitant]
     Indication: Product used for unknown indication
     Dosage: UNK UNK, UNKNOWN
     Route: 065
     Dates: start: 2018
  10. OMEPRAZOLE [Concomitant]
     Active Substance: OMEPRAZOLE
     Indication: Dyspepsia
     Dosage: UNK UNK, UNKNOWN
     Route: 065
     Dates: start: 2022

REACTIONS (3)
  - Toxic skin eruption [Recovering/Resolving]
  - Erythema multiforme [Recovering/Resolving]
  - Off label use [Recovered/Resolved]

NARRATIVE: CASE EVENT DATE: 20230909
